FAERS Safety Report 26010757 (Version 1)
Quarter: 2025Q4

REPORT INFORMATION
  Report Type: Spontaneous
  Country: EU (occurrence: EU)
  Receive Date: 20251107
  Receipt Date: 20251107
  Transmission Date: 20260117
  Serious: Yes (Hospitalization)
  Sender: RANBAXY
  Company Number: EU-AFSSAPS-GR2025001105

PATIENT
  Age: 53 Year
  Sex: Male
  Weight: 71 kg

DRUGS (2)
  1. AMLODIPINE [Suspect]
     Active Substance: AMLODIPINE BESYLATE
     Indication: Intentional overdose
     Dosage: UNK, NP
     Route: 048
     Dates: start: 20250624, end: 20250624
  2. ALPRAZOLAM [Suspect]
     Active Substance: ALPRAZOLAM
     Indication: Intentional overdose
     Dosage: 75 MILLIGRAM, TOTAL 1
     Route: 048
     Dates: start: 20250624, end: 20250624

REACTIONS (3)
  - Respiratory distress [Recovered/Resolved]
  - Poisoning deliberate [Recovered/Resolved]
  - Altered state of consciousness [Recovered/Resolved]

NARRATIVE: CASE EVENT DATE: 20250624
